FAERS Safety Report 4330336-4 (Version None)
Quarter: 2004Q1

REPORT INFORMATION
  Report Type: 
  Country: None (occurrence: None)
  Receive Date: 20040329
  Receipt Date: 20040312
  Transmission Date: 20041129
  Serious: Yes (Hospitalization, Other)
  Sender: FDA-Public Use
  Company Number: 2004010362

PATIENT
  Age: 28 Year
  Sex: Female

DRUGS (6)
  1. ZITHROMAX [Suspect]
     Indication: PHARYNGITIS
     Dosage: 500 MG (DAILY), ORAL
     Route: 048
     Dates: start: 20040202, end: 20040202
  2. CARBAMAZEPINE [Suspect]
     Indication: ILL-DEFINED DISORDER
     Dosage: 150 MG (BID), ORAL
     Route: 048
     Dates: start: 20040120, end: 20040202
  3. FLUNITRAZEPAM          (FLUNITRAZEPAM) [Concomitant]
  4. BROMAZEPAM     (BROMAZEPAM) [Concomitant]
  5. MILNACIPRAN HYDROCHLORIDE    (MILNACIPRAN HYDROCHLORIDE) [Concomitant]
  6. LOXOPROFEN SODIUM         (LOXOPROFEN SODIUM) [Concomitant]

REACTIONS (7)
  - CONJUNCTIVAL HYPERAEMIA [None]
  - MALAISE [None]
  - PAIN IN EXTREMITY [None]
  - SKIN NECROSIS [None]
  - STEVENS-JOHNSON SYNDROME [None]
  - SWELLING FACE [None]
  - URTICARIA [None]
